FAERS Safety Report 9469524 (Version 2)
Quarter: 2013Q4

REPORT INFORMATION
  Report Type: Spontaneous
  Country: US (occurrence: US)
  Receive Date: 20130822
  Receipt Date: 20131015
  Transmission Date: 20140711
  Serious: Yes (Hospitalization)
  Sender: FDA-Public Use
  Company Number: US-BIOGENIDEC-2013BI076300

PATIENT
  Sex: Male

DRUGS (1)
  1. TYSABRI [Suspect]
     Indication: MULTIPLE SCLEROSIS
     Route: 042
     Dates: start: 20061121, end: 20130214

REACTIONS (4)
  - Drug specific antibody present [Unknown]
  - Infection [Recovered/Resolved]
  - Multiple sclerosis [Not Recovered/Not Resolved]
  - Abasia [Not Recovered/Not Resolved]
